FAERS Safety Report 24774214 (Version 2)
Quarter: 2025Q1

REPORT INFORMATION
  Report Type: Spontaneous
  Country: CA (occurrence: CA)
  Receive Date: 20241225
  Receipt Date: 20250107
  Transmission Date: 20250409
  Serious: Yes (Hospitalization)
  Sender: TEVA
  Company Number: CA-TEVA-VS-3277152

PATIENT
  Sex: Male

DRUGS (3)
  1. INDOMETHACIN [Suspect]
     Active Substance: INDOMETHACIN
     Indication: Headache
     Route: 048
  2. PANTOPRAZOLE [Concomitant]
     Active Substance: PANTOPRAZOLE
     Indication: Gastrooesophageal reflux disease
     Route: 048
  3. TRANDOLAPRIL [Concomitant]
     Active Substance: TRANDOLAPRIL
     Indication: Hypertension
     Route: 048

REACTIONS (2)
  - Hypertensive encephalopathy [Recovered/Resolved]
  - Confusional state [Recovered/Resolved]
